FAERS Safety Report 19712705 (Version 4)
Quarter: 2021Q3

REPORT INFORMATION
  Report Type: Report from Study
  Country: JP (occurrence: JP)
  Receive Date: 20210816
  Receipt Date: 20210916
  Transmission Date: 20211014
  Serious: Yes (Hospitalization, Other)
  Sender: FDA-Public Use
  Company Number: JP-BRISTOL-MYERS SQUIBB COMPANY-BMS-2021-079088

PATIENT
  Age: 65 Year
  Sex: Male
  Weight: 48.5 kg

DRUGS (18)
  1. NIVOLUMAB [Suspect]
     Active Substance: NIVOLUMAB
     Indication: OESOPHAGEAL CARCINOMA
     Dosage: 360 MILLIGRAM, Q3WK
     Route: 041
     Dates: start: 20210708
  2. PIPERACILLIN,TAZOBACTAM [Suspect]
     Active Substance: PIPERACILLIN SODIUM\TAZOBACTAM SODIUM
     Dosage: 9 G/DAY (INJECTION)
     Route: 042
     Dates: start: 20210806, end: 20210808
  3. LOXOPROFEN NA [Concomitant]
     Active Substance: LOXOPROFEN SODIUM
     Indication: BACK PAIN
     Dosage: 50 MG, PRN
     Route: 062
     Dates: start: 20210624
  4. MAGMITT [Concomitant]
     Active Substance: MAGNESIUM OXIDE
     Indication: CONSTIPATION
     Dosage: 660 MG, Q8H
     Route: 048
     Dates: start: 2021
  5. AZUNOL GARGLE LIQUID [Concomitant]
     Active Substance: SODIUM GUALENATE MONOHYDRATE
     Indication: PROPHYLAXIS
     Dosage: 5 DROP, PRN
     Route: 002
     Dates: start: 20210708
  6. TAKECAB [Concomitant]
     Active Substance: VONOPRAZAN FUMARATE
     Indication: GASTRITIS PROPHYLAXIS
     Dosage: 20 MG, EVERYDAY
     Route: 048
     Dates: start: 2021
  7. AMLODIPINE [Concomitant]
     Active Substance: AMLODIPINE BESYLATE
     Indication: HYPERTENSION
     Dosage: 5 MG, EVERYDAY
     Route: 048
     Dates: start: 2008
  8. BROTIZOLAM [Concomitant]
     Active Substance: BROTIZOLAM
     Indication: INSOMNIA
     Dosage: 0.25 MG, PRN
     Route: 048
  9. DICLOFENAC SODIUM. [Concomitant]
     Active Substance: DICLOFENAC SODIUM
     Indication: PROPHYLAXIS
     Dosage: 25 MG, PRN
     Route: 048
     Dates: start: 20210726
  10. SOLDEM 3A [Concomitant]
     Active Substance: CARBOHYDRATES\POTASSIUM CHLORIDE\SODIUM CHLORIDE\SODIUM LACTATE
     Indication: FLUID REPLACEMENT
     Dosage: 500 MILLILITER, QD
     Route: 042
     Dates: start: 20210804
  11. E7389?LF [Suspect]
     Active Substance: ERIBULIN MESYLATE
     Indication: OESOPHAGEAL CARCINOMA
     Dosage: 2.1 MILLIGRAM/SQ. METER, Q3WK
     Route: 065
     Dates: start: 20210708
  12. E7389?LF [Suspect]
     Active Substance: ERIBULIN MESYLATE
     Dosage: 1.7 MILLIGRAM/SQ. METER, Q3WK
     Route: 065
     Dates: start: 20210729
  13. TOPSYM [Concomitant]
     Indication: PRURITUS
     Dosage: APPROPRIATE AMOUNT, Q12H
     Route: 061
     Dates: start: 20210715
  14. ELNEOPA NF NO.1 [Concomitant]
     Indication: NUTRITIONAL SUPPLEMENTATION
     Dosage: 1500 ML, EVERYDAY, INJECTION
     Route: 042
     Dates: start: 20210805
  15. SODIUM BICARBONATE. [Concomitant]
     Active Substance: SODIUM BICARBONATE
     Indication: PROPHYLAXIS
     Dosage: 0.5 G, PRN
     Route: 048
     Dates: start: 20210726
  16. PIPERACILLIN,TAZOBACTAM [Suspect]
     Active Substance: PIPERACILLIN SODIUM\TAZOBACTAM SODIUM
     Indication: FEBRILE NEUTROPENIA
     Dosage: 4.5 GRAM, Q6H (INJECTION)
     Route: 042
     Dates: start: 20210804, end: 20210805
  17. MOSAPRIDE CITRATE [Concomitant]
     Active Substance: MOSAPRIDE CITRATE
     Indication: GASTRITIS PROPHYLAXIS
     Dosage: 5 MG, Q8H
     Route: 048
     Dates: start: 20210527
  18. TRANEXAMIC ACID. [Concomitant]
     Active Substance: TRANEXAMIC ACID
     Indication: PROPHYLAXIS
     Dosage: 250 MG, PRN
     Route: 048
     Dates: start: 20210726

REACTIONS (2)
  - Febrile neutropenia [Recovered/Resolved]
  - Acute kidney injury [Not Recovered/Not Resolved]

NARRATIVE: CASE EVENT DATE: 20210804
